FAERS Safety Report 12759877 (Version 1)
Quarter: 2016Q3

REPORT INFORMATION
  Report Type: Spontaneous
  Country: US (occurrence: US)
  Receive Date: 20160919
  Receipt Date: 20160919
  Transmission Date: 20161109
  Serious: Yes (Other)
  Sender: FDA-Public Use
  Company Number: US-CMP PHARMA-2016CMP00024

PATIENT
  Age: 12 Year
  Sex: Male

DRUGS (1)
  1. TRIAMCINOLONE [Suspect]
     Active Substance: TRIAMCINOLONE
     Indication: KELOID SCAR
     Dosage: ONCE
     Route: 058
     Dates: start: 200811, end: 200811

REACTIONS (3)
  - Retinal artery occlusion [Recovering/Resolving]
  - Blindness [Recovering/Resolving]
  - Retinal artery embolism [Recovered/Resolved]

NARRATIVE: CASE EVENT DATE: 200811
